FAERS Safety Report 8329599 (Version 6)
Quarter: 2014Q1

REPORT INFORMATION
  Report Type: Spontaneous
  Country: DE (occurrence: DE)
  Receive Date: 20120110
  Receipt Date: 20140307
  Transmission Date: 20141002
  Serious: Yes (Death, Hospitalization, Other)
  Sender: FDA-Public Use
  Company Number: PHHY2012DE000998

PATIENT
  Age: 77 Year
  Sex: Female
  Weight: 56 kg

DRUGS (15)
  1. ILARIS [Suspect]
     Indication: MUCKLE-WELLS SYNDROME
     Dosage: 150 MG, EVERY 8TH WEEK
     Route: 058
     Dates: start: 20091130, end: 20120523
  2. PANTOPRAZOLE [Concomitant]
     Indication: PROPHYLAXIS
     Dosage: 40 MG/DAY
     Route: 048
     Dates: start: 2009
  3. SIMVASTATIN [Concomitant]
     Indication: HYPERCHOLESTEROLAEMIA
     Dosage: 20 MG/DAY
  4. TORASEMIDE [Concomitant]
     Indication: CARDIAC FAILURE CONGESTIVE
     Dosage: 10 MG/DAY
     Route: 048
     Dates: start: 2009
  5. TORASEMIDE [Concomitant]
     Indication: POLYURIA
     Dosage: 10 MG/DAY
     Route: 048
     Dates: start: 20120221
  6. XIPAMIDE [Concomitant]
     Dosage: 5 MG/DAY
     Route: 048
     Dates: start: 2009
  7. ACETYLSALICYLIC ACID [Concomitant]
     Dosage: 100 MG/DAY
     Route: 048
     Dates: start: 20120221
  8. OMEPRAZOL [Concomitant]
     Dosage: 40 MG/DAY
     Route: 048
     Dates: start: 20120221
  9. INSIDON [Concomitant]
     Indication: DEPRESSION
     Dosage: 50 MG, UNK
     Route: 048
     Dates: start: 20120221
  10. BISOPROLOL [Concomitant]
     Indication: HYPERTENSION
     Dosage: 2.5 MG, UNK
     Route: 048
     Dates: start: 20120221
  11. MORPHINE [Concomitant]
     Indication: PAIN
     Route: 062
     Dates: start: 20120221
  12. NOVALGIN [Concomitant]
     Indication: PAIN
     Dosage: UNK
     Route: 048
     Dates: start: 20120221
  13. DEXAMETHASONE [Concomitant]
     Indication: PAIN
     Dosage: 4 MG/DAY
     Route: 048
     Dates: start: 20120221
  14. KEVATRIL [Concomitant]
     Indication: NAUSEA
     Dosage: 2 MG/DAY
     Route: 048
     Dates: start: 20120221
  15. BUPRENORPHINE [Concomitant]
     Indication: PAIN
     Dosage: 35 UG/HR, EVERY THIRD DAY

REACTIONS (5)
  - Rectal cancer metastatic [Fatal]
  - Decreased appetite [Fatal]
  - Metastases to lung [Fatal]
  - Metastases to lymph nodes [Fatal]
  - Metastases to central nervous system [Fatal]
